FAERS Safety Report 8401969-0 (Version None)
Quarter: 2012Q2

REPORT INFORMATION
  Report Type: 
  Country: None (occurrence: None)
  Receive Date: 20120601
  Receipt Date: 20120524
  Transmission Date: 20120825
  Serious: Yes (Hospitalization)
  Sender: FDA-Public Use
  Company Number: SG-PFIZER INC-SG-WYE-H17979510

PATIENT
  Age: 47 Year
  Sex: Male
  Weight: 72.8 kg

DRUGS (8)
  1. CISPLATIN [Suspect]
     Indication: DIFFUSE LARGE B-CELL LYMPHOMA
     Dosage: 50 MG/M2, ONCE, SECOND DOSE IN SERIES
     Route: 042
     Dates: start: 20100831
  2. RITUXIMAB [Suspect]
     Indication: DIFFUSE LARGE B-CELL LYMPHOMA
     Dosage: 375 MG/M2, ONCE, SECOND DOSE IN SERIES
     Route: 042
     Dates: start: 20100831
  3. INOTUZUMAB OZOGAMICIN [Suspect]
     Indication: DIFFUSE LARGE B-CELL LYMPHOMA
     Dosage: 0.8 MG/M2, ONCE, SECOND DOSE IN SERIES
     Route: 042
     Dates: start: 20100831
  4. SENNOSIDE A [Concomitant]
     Indication: CONSTIPATION
     Dosage: 7.5 MG, 2 TABLETS ON 8 DAY
     Route: 048
     Dates: start: 20100927, end: 20101004
  5. ACYCLOVIR [Concomitant]
     Indication: PROPHYLAXIS
     Dosage: 400 MG, 2X/DAY
     Route: 048
     Dates: start: 20100831
  6. DEXAMETHASONE ACETATE [Suspect]
     Indication: DIFFUSE LARGE B-CELL LYMPHOMA
     Dosage: 40 MG, FOR 4 DAYS, SECOND DOSE IN SERIES
     Route: 048
     Dates: start: 20100831
  7. FAMOTIDINE [Concomitant]
     Indication: PROPHYLAXIS
     Dosage: 20 MG, 2X/DAY
     Route: 048
     Dates: start: 20100831
  8. GEMCITABINE [Suspect]
     Indication: DIFFUSE LARGE B-CELL LYMPHOMA
     Dosage: 500 MG/M2, ONCE, SECOND DOSE IN SERIES
     Route: 042
     Dates: start: 20100831

REACTIONS (1)
  - NEUTROPENIC SEPSIS [None]
